FAERS Safety Report 20088112 (Version 1)
Quarter: 2021Q4

REPORT INFORMATION
  Report Type: Spontaneous
  Country: US (occurrence: US)
  Receive Date: 20211118
  Receipt Date: 20211118
  Transmission Date: 20220303
  Serious: Yes (Other)
  Sender: FDA-Public Use
  Company Number: US-BIOMARINAP-US-2021-139673

PATIENT
  Sex: Female
  Weight: 55.329 kg

DRUGS (2)
  1. BRINEURA [Suspect]
     Active Substance: CERLIPONASE ALFA
     Indication: Neuronal ceroid lipofuscinosis
     Dosage: 300 MILLIGRAM, QOW
     Route: 065
     Dates: start: 201610
  2. GEMFIBROZIL ACTAVIS [Concomitant]
     Indication: Product used for unknown indication

REACTIONS (3)
  - Device related infection [Unknown]
  - General physical health deterioration [Unknown]
  - Arthropathy [Unknown]
